FAERS Safety Report 15730463 (Version 2)
Quarter: 2019Q1

REPORT INFORMATION
  Report Type: Spontaneous
  Country: US (occurrence: US)
  Receive Date: 20181217
  Receipt Date: 20190301
  Transmission Date: 20190417
  Serious: Yes (Other)
  Sender: FDA-Public Use
  Company Number: US-SA-2018SA338587

PATIENT
  Age: 40 Year
  Sex: Female

DRUGS (3)
  1. TAXOTERE [Suspect]
     Active Substance: DOCETAXEL
     Indication: BREAST CANCER FEMALE
     Dosage: 150 MG, UNK
     Route: 042
     Dates: start: 200406, end: 200406
  2. TAXOTERE [Suspect]
     Active Substance: DOCETAXEL
     Dosage: 150 UNK
     Route: 042
     Dates: start: 200410, end: 200410
  3. TAXOL [Concomitant]
     Active Substance: PACLITAXEL

REACTIONS (2)
  - Alopecia [Recovering/Resolving]
  - Psychological trauma [Unknown]

NARRATIVE: CASE EVENT DATE: 200504
